FAERS Safety Report 13734994 (Version 2)
Quarter: 2017Q4

REPORT INFORMATION
  Report Type: Report from Study
  Country: CO (occurrence: CO)
  Receive Date: 20170710
  Receipt Date: 20171019
  Transmission Date: 20180320
  Serious: Yes (Death, Life-Threatening, Other)
  Sender: FDA-Public Use
  Company Number: CO-AMGEN-COLSL2017039632

PATIENT
  Age: 50 Year
  Sex: Male

DRUGS (1)
  1. VECTIBIX [Suspect]
     Active Substance: PANITUMUMAB
     Indication: COLORECTAL CANCER METASTATIC
     Dosage: 460 MG, Q2WK
     Route: 042
     Dates: start: 20160608, end: 20161003

REACTIONS (3)
  - Colorectal cancer metastatic [Not Recovered/Not Resolved]
  - Death [Fatal]
  - Dermatitis acneiform [Recovered/Resolved]

NARRATIVE: CASE EVENT DATE: 2016
